FAERS Safety Report 9286739 (Version 1)
Quarter: 2013Q2

REPORT INFORMATION
  Report Type: Spontaneous
  Country: NL (occurrence: NL)
  Receive Date: 20130513
  Receipt Date: 20130513
  Transmission Date: 20140414
  Serious: Yes (Other)
  Sender: FDA-Public Use
  Company Number: NL-AMGEN-NLDSP2013033286

PATIENT
  Age: 51 Year
  Sex: Female

DRUGS (3)
  1. ENBREL [Suspect]
     Indication: RHEUMATOID ARTHRITIS
     Dosage: 50 MG, 1X IN 3 WEEKS
     Dates: start: 2009
  2. ENBREL [Suspect]
     Dosage: 50 MG, 1X IN 4 WEEKS
  3. ENBREL [Suspect]
     Dosage: 50 MG, 1X IN 2 WEEKS
     Dates: start: 201208

REACTIONS (1)
  - Rheumatoid arthritis [Recovered/Resolved]
